FAERS Safety Report 6485762-4 (Version None)
Quarter: 2009Q4

REPORT INFORMATION
  Report Type: 
  Country: None (occurrence: None)
  Receive Date: 20091204
  Receipt Date: 20091202
  Transmission Date: 20100525
  Serious: Yes (Other)
  Sender: FDA-Public Use
  Company Number: 1000010512

PATIENT
  Age: 40 Year
  Sex: Female
  Weight: 63.5036 kg

DRUGS (5)
  1. THYROID TAB [Suspect]
     Indication: HYPOTHYROIDISM
  2. ACETAMINOPHEN [Suspect]
     Indication: EAR INFECTION
     Dosage: 1000 MG EVERY 4-6 HOURS
     Dates: start: 20091029, end: 20091105
  3. PHENOBARBITAL [Suspect]
     Indication: CONVULSION PROPHYLAXIS
  4. ANTIBIOTIC (NOS) [Suspect]
     Indication: EAR INFECTION
     Dosage: (1 IN 1 TOTAL)
     Dates: start: 20091101, end: 20091101
  5. AMOXICILLIN [Suspect]
     Indication: EAR INFECTION
     Dates: start: 20091104, end: 20091101

REACTIONS (3)
  - CONVULSION [None]
  - DRUG INTERACTION [None]
  - EAR INFECTION [None]
